FAERS Safety Report 9710246 (Version 3)
Quarter: 2014Q1

REPORT INFORMATION
  Report Type: Spontaneous
  Country: DE (occurrence: DE)
  Receive Date: 20131126
  Receipt Date: 20140203
  Transmission Date: 20141002
  Serious: Yes (Other)
  Sender: FDA-Public Use
  Company Number: DE-INCYTE CORPORATION-2013IN002760

PATIENT
  Sex: Male

DRUGS (3)
  1. JAKAVI [Suspect]
     Indication: MYELOFIBROSIS
     Dosage: 10 MG, BID
     Route: 065
     Dates: start: 201109
  2. JAKAVI [Suspect]
     Dosage: 10 MG, QD
     Route: 065
  3. JAKAVI [Suspect]
     Dosage: 15 MG, BID
     Route: 065

REACTIONS (4)
  - Polycythaemia vera [Unknown]
  - Red blood cell count decreased [Recovered/Resolved]
  - White blood cell count decreased [Recovered/Resolved]
  - Platelet count decreased [Recovered/Resolved]
